FAERS Safety Report 10390966 (Version 1)
Quarter: 2014Q3

REPORT INFORMATION
  Report Type: Spontaneous
  Country: FR (occurrence: FR)
  Receive Date: 20140818
  Receipt Date: 20140818
  Transmission Date: 20150326
  Serious: Yes (Other)
  Sender: FDA-Public Use
  Company Number: FR-ABBVIE-14K-056-1271165-00

PATIENT
  Age: 64 Year
  Sex: Male
  Weight: 76 kg

DRUGS (1)
  1. HUMIRA [Suspect]
     Active Substance: ADALIMUMAB
     Indication: CROHN^S DISEASE
     Route: 058
     Dates: start: 20120619, end: 201403

REACTIONS (1)
  - Monoclonal immunoglobulin present [Not Recovered/Not Resolved]

NARRATIVE: CASE EVENT DATE: 20140326
